FAERS Safety Report 9883801 (Version 3)
Quarter: 2014Q3

REPORT INFORMATION
  Report Type: Spontaneous
  Country: US (occurrence: US)
  Receive Date: 20140210
  Receipt Date: 20140923
  Transmission Date: 20150326
  Serious: Yes (Hospitalization, Other)
  Sender: FDA-Public Use
  Company Number: US-009507513-1402USA003582

PATIENT
  Sex: Female

DRUGS (1)
  1. NUVARING [Suspect]
     Active Substance: ETHINYL ESTRADIOL\ETONOGESTREL
     Indication: PRODUCT USED FOR UNKNOWN INDICATION
     Route: 067

REACTIONS (15)
  - Thrombosis [Unknown]
  - Phlebitis superficial [Recovered/Resolved]
  - Purulent discharge [Unknown]
  - Transaminases increased [Unknown]
  - Hepatitis C antibody [Unknown]
  - Pulmonary hypertension [Unknown]
  - Ovarian cyst [Recovered/Resolved]
  - Deep vein thrombosis [Unknown]
  - Acute chest syndrome [Unknown]
  - Sickle cell anaemia with crisis [Unknown]
  - Liver function test abnormal [Unknown]
  - Pulmonary embolism [Unknown]
  - Dyspnoea [Recovering/Resolving]
  - Sickle cell anaemia with crisis [Unknown]
  - Thoracic operation [Unknown]

NARRATIVE: CASE EVENT DATE: 2008
